FAERS Safety Report 8271776-0 (Version None)
Quarter: 2012Q2

REPORT INFORMATION
  Report Type: 
  Country: None (occurrence: None)
  Receive Date: 20120410
  Receipt Date: 20120402
  Transmission Date: 20120825
  Serious: Yes (Hospitalization)
  Sender: FDA-Public Use
  Company Number: US-VERTEX PHARMACEUTICALS INC.-AE-2012-004651

PATIENT
  Sex: Male

DRUGS (4)
  1. LISINOPRIL [Concomitant]
     Indication: BLOOD PRESSURE
  2. INCIVEK [Suspect]
     Indication: HEPATITIS C
     Dates: start: 20120127
  3. PEGASYS [Concomitant]
     Indication: HEPATITIS C
     Dates: start: 20120127
  4. RIBAVIRIN [Concomitant]
     Indication: HEPATITIS C
     Dates: start: 20120127

REACTIONS (8)
  - MENTAL IMPAIRMENT [None]
  - VOMITING [None]
  - ABDOMINAL PAIN UPPER [None]
  - PAIN [None]
  - FATIGUE [None]
  - MUSCULAR WEAKNESS [None]
  - NAUSEA [None]
  - PANCREATITIS [None]
